FAERS Safety Report 19581652 (Version 1)
Quarter: 2021Q3

REPORT INFORMATION
  Report Type: Report from Study
  Country: US (occurrence: US)
  Receive Date: 20210720
  Receipt Date: 20210720
  Transmission Date: 20211014
  Serious: Yes (Death, Hospitalization, Other)
  Sender: FDA-Public Use
  Company Number: US-BRISTOL-MYERS SQUIBB COMPANY-BMS-2021-070443

PATIENT
  Age: 59 Year
  Sex: Male

DRUGS (3)
  1. NIVOLUMAB [Suspect]
     Active Substance: NIVOLUMAB
     Indication: RECTAL CANCER METASTATIC
     Dosage: UNK
     Route: 065
     Dates: start: 20201223
  2. CISPLATIN. [Suspect]
     Active Substance: CISPLATIN
     Indication: RECTAL CANCER METASTATIC
     Dosage: UNK
     Route: 065
     Dates: start: 20201223
  3. TEMOZOLOMIDE. [Suspect]
     Active Substance: TEMOZOLOMIDE
     Indication: RECTAL CANCER METASTATIC
     Dosage: UNK
     Route: 065
     Dates: start: 20201223

REACTIONS (2)
  - Dyspnoea [Fatal]
  - Respiratory failure [Fatal]

NARRATIVE: CASE EVENT DATE: 20210621
